FAERS Safety Report 23026723 (Version 1)
Quarter: 2023Q4

REPORT INFORMATION
  Report Type: Spontaneous
  Country: US (occurrence: US)
  Receive Date: 20231004
  Receipt Date: 20231004
  Transmission Date: 20240110
  Serious: Yes (Hospitalization)
  Sender: FDA-Public Use
  Company Number: US-MYLANLABS-2023M1103374

PATIENT
  Age: 46 Year
  Sex: Female

DRUGS (3)
  1. HEPARIN [Suspect]
     Active Substance: HEPARIN SODIUM
     Indication: Deep vein thrombosis
     Dosage: UNK
     Route: 042
  2. HEPARIN [Suspect]
     Active Substance: HEPARIN SODIUM
     Dosage: UNK, THERAPEUTIC IV HEPARIN INFUSION DRIP GIVEN AT 24 HOURS AFTER THE SURGERY
     Route: 042
  3. HEPARIN [Suspect]
     Active Substance: HEPARIN SODIUM
     Indication: Deep vein thrombosis
     Dosage: 5000 INTERNATIONAL UNIT, Q8H
     Route: 065

REACTIONS (2)
  - Pelvic haematoma [Recovering/Resolving]
  - Extravasation [Recovering/Resolving]
